FAERS Safety Report 25342489 (Version 1)
Quarter: 2025Q2

REPORT INFORMATION
  Report Type: Spontaneous
  Country: US (occurrence: US)
  Receive Date: 20250521
  Receipt Date: 20250521
  Transmission Date: 20250716
  Serious: No
  Sender: CATALYST PHARMA
  Company Number: US-CATALYST PHARMACEUTICALS-US-CATA-25-00299

PATIENT
  Age: 15 Year
  Sex: Male
  Weight: 72.24 kg

DRUGS (10)
  1. AGAMREE [Suspect]
     Active Substance: VAMOROLONE
     Indication: Duchenne muscular dystrophy
     Dosage: 7.5 ML ONCE DAILY
     Route: 048
     Dates: start: 20240605
  2. ACETAMINOPHEN [Concomitant]
     Active Substance: ACETAMINOPHEN
     Indication: Pain
     Route: 065
  3. ACETAMINOPHEN [Concomitant]
     Active Substance: ACETAMINOPHEN
     Indication: Pyrexia
  4. ALBUTEROL SULFATE [Concomitant]
     Active Substance: ALBUTEROL SULFATE
     Indication: Lung disorder
     Route: 055
  5. BACLOFEN [Concomitant]
     Active Substance: BACLOFEN
     Indication: Muscle spasms
     Route: 065
  6. BENADRYL [Concomitant]
     Active Substance: DIPHENHYDRAMINE HYDROCHLORIDE
     Indication: Hypersensitivity
     Route: 065
  7. EXONDYS 51 [Concomitant]
     Active Substance: ETEPLIRSEN
     Indication: Duchenne muscular dystrophy
     Dosage: ONCE A WEEK
     Route: 042
  8. VITAMINS [Concomitant]
     Active Substance: VITAMINS
     Indication: Hypovitaminosis
     Dosage: 1 TABLET DAILY
     Route: 065
  9. SYMBICORT [Concomitant]
     Active Substance: BUDESONIDE\FORMOTEROL FUMARATE DIHYDRATE
     Indication: Lung disorder
     Dosage: 2 PUFFS TWICE A DAY
     Route: 065
  10. VITAMIN D [Concomitant]
     Active Substance: VITAMIN D NOS
     Indication: Bone disorder
     Dosage: 50 MCG DAILY
     Route: 065

REACTIONS (2)
  - Gastroenteritis viral [Recovered/Resolved]
  - Product dose omission issue [Unknown]

NARRATIVE: CASE EVENT DATE: 20250125
